FAERS Safety Report 23599416 (Version 2)
Quarter: 2025Q2

REPORT INFORMATION
  Report Type: Spontaneous
  Country: US (occurrence: US)
  Receive Date: 20240306
  Receipt Date: 20250401
  Transmission Date: 20250716
  Serious: No
  Sender: PTC THERAPEUTICS
  Company Number: US-PTC THERAPEUTICS INC.-US-2024PTC000171

PATIENT
  Age: 10 Year
  Sex: Male
  Weight: 36.417 kg

DRUGS (5)
  1. EMFLAZA [Suspect]
     Active Substance: DEFLAZACORT
     Indication: Duchenne muscular dystrophy
     Dosage: 27.3 MILLIGRAM (1.2ML), QD
     Route: 048
     Dates: end: 202311
  2. EMFLAZA [Suspect]
     Active Substance: DEFLAZACORT
     Indication: Becker^s muscular dystrophy
     Dosage: 27.3 (1.2ML) MILLIGRAM, QD, IN DIVIDED DOSES, ONE IN THE MORNING AND ONE IN THE AFTERNOON RIGHT AFTE
     Route: 048
     Dates: start: 20231205
  3. EMFLAZA [Suspect]
     Active Substance: DEFLAZACORT
     Dosage: 14 MILLIGRAM, QD
     Route: 048
     Dates: start: 202311, end: 202312
  4. POLYETHYLENE GLYCOLS [Concomitant]
     Active Substance: POLYETHYLENE GLYCOLS
     Indication: Product used for unknown indication
  5. ENALAPRIL MALEATE [Concomitant]
     Active Substance: ENALAPRIL MALEATE
     Indication: Product used for unknown indication

REACTIONS (3)
  - Behaviour disorder [Recovering/Resolving]
  - Affective disorder [Recovering/Resolving]
  - Off label use [Unknown]

NARRATIVE: CASE EVENT DATE: 20231101
